FAERS Safety Report 4888292-6 (Version None)
Quarter: 2006Q1

REPORT INFORMATION
  Report Type: 
  Country: None (occurrence: None)
  Receive Date: 20060123
  Receipt Date: 20060116
  Transmission Date: 20060701
  Serious: Yes (Other)
  Sender: FDA-Public Use
  Company Number: US-JNJFOC-20051204959

PATIENT
  Sex: Male
  Weight: 92.53 kg

DRUGS (1)
  1. REMICADE [Suspect]
     Indication: RHEUMATOID ARTHRITIS
     Dosage: PATIENT HAS BEEN ON INFLIXIMAB FOR THREE YEARS-GETS 400 MG EVERY EIGHT WEEKS.
     Route: 042

REACTIONS (1)
  - BLADDER CANCER [None]
